FAERS Safety Report 6187910-2 (Version None)
Quarter: 2009Q2

REPORT INFORMATION
  Report Type: 
  Country: None (occurrence: None)
  Receive Date: 20090511
  Receipt Date: 20090511
  Transmission Date: 20091009
  Serious: Yes (Life-Threatening, Hospitalization, Other)
  Sender: FDA-Public Use
  Company Number: None

PATIENT
  Age: 50 Year
  Sex: Female
  Weight: 82.5547 kg

DRUGS (2)
  1. LYRICA [Suspect]
     Indication: FIBROMYALGIA
     Dosage: 150 MG 2/DAY ORAL
     Route: 048
     Dates: start: 20090202, end: 20090417
  2. MILNACIPRAN [Suspect]
     Indication: FIBROMYALGIA
     Dosage: 100 MG 1/DAY ORAL
     Route: 048
     Dates: start: 20090323, end: 20090413

REACTIONS (20)
  - ASTHENIA [None]
  - BACK PAIN [None]
  - BLOOD TRIGLYCERIDES INCREASED [None]
  - CHROMATURIA [None]
  - COLLAPSE OF LUNG [None]
  - DISTURBANCE IN ATTENTION [None]
  - DIZZINESS [None]
  - DRY MOUTH [None]
  - DYSPNOEA [None]
  - EUPHORIC MOOD [None]
  - HEADACHE [None]
  - HOT FLUSH [None]
  - HYPOPHAGIA [None]
  - NAUSEA [None]
  - PLEURISY [None]
  - PNEUMONIA [None]
  - SOMNAMBULISM [None]
  - SOMNOLENCE [None]
  - VOMITING [None]
  - WEIGHT DECREASED [None]
